FAERS Safety Report 7550144-0 (Version None)
Quarter: 2011Q2

REPORT INFORMATION
  Report Type: 
  Country: None (occurrence: None)
  Receive Date: 20110615
  Receipt Date: 20110531
  Transmission Date: 20111010
  Serious: Yes (Hospitalization)
  Sender: FDA-Public Use
  Company Number: AR-GENENTECH-320119

PATIENT
  Sex: Female

DRUGS (1)
  1. XOLAIR [Suspect]
     Indication: BRONCHIAL DISORDER
     Dosage: UNK

REACTIONS (2)
  - BRONCHIAL DISORDER [None]
  - CONDITION AGGRAVATED [None]
